FAERS Safety Report 4548363-0 (Version None)
Quarter: 2005Q1

REPORT INFORMATION
  Report Type: 
  Country: None (occurrence: None)
  Receive Date: 20050110
  Receipt Date: 20041101
  Transmission Date: 20050727
  Serious: Yes (Congenital Anomaly)
  Sender: FDA-Public Use
  Company Number: US-ROCHE-385214

PATIENT
  Sex: Male
  Weight: 3 kg

DRUGS (2)
  1. ACCUTANE [Suspect]
     Indication: ACNE
  2. ORTHO TRI-CYCLEN [Concomitant]

REACTIONS (22)
  - ABNORMAL PALMAR/PLANTAR CREASES [None]
  - ANOTIA [None]
  - AORTIC DISORDER [None]
  - CENTRAL NERVOUS SYSTEM STIMULATION [None]
  - CONGENITAL ANOMALIES OF EAR OSSICLES [None]
  - CONGENITAL CARDIOVASCULAR ANOMALY [None]
  - CONGENITAL NOSE MALFORMATION [None]
  - CREPITATIONS [None]
  - DEPRESSED LEVEL OF CONSCIOUSNESS [None]
  - DEVELOPMENTAL COORDINATION DISORDER [None]
  - EAR DISORDER [None]
  - EYE DISORDER [None]
  - FACIAL DYSMORPHISM [None]
  - FACIAL PALSY [None]
  - FEEDING DISORDER [None]
  - FOETAL DISORDER [None]
  - HEARING IMPAIRED [None]
  - HYPERSOMNIA [None]
  - HYPOKINESIA [None]
  - JAUNDICE [None]
  - OCULAR ICTERUS [None]
  - VENTRICULAR SEPTAL DEFECT [None]
